FAERS Safety Report 8814383 (Version 2)
Quarter: 2012Q4

REPORT INFORMATION
  Report Type: 
  Country: IT (occurrence: IT)
  Receive Date: 20120928
  Receipt Date: 20121008
  Transmission Date: 20130627
  Serious: Yes (Hospitalization)
  Sender: FDA-Public Use
  Company Number: PHHY2012IT083168

PATIENT
  Age: 90 Year
  Sex: Male

DRUGS (5)
  1. VOLTAREN [Suspect]
     Indication: BACK PAIN
     Dosage: 1 DF, daily
     Route: 030
     Dates: start: 20120725, end: 20120731
  2. ACETAMINOPHEN (+) CODEINE [Suspect]
     Indication: BACK PAIN
     Dosage: 1 DF, daily
     Route: 048
     Dates: start: 20120721, end: 20120731
  3. THIOCOLCHICOSIDE [Suspect]
     Indication: BACK PAIN
     Dosage: 1 DF, daily
     Route: 030
     Dates: start: 20120725, end: 20120731
  4. NITROGLYCERIN [Concomitant]
     Dosage: 10 mg, 1 patch
     Route: 062
  5. COTAREG [Concomitant]
     Dosage: 1 DF, daily
     Route: 048

REACTIONS (2)
  - Drug resistance [Unknown]
  - Back pain [Unknown]
